FAERS Safety Report 12167154 (Version 1)
Quarter: 2016Q1

REPORT INFORMATION
  Report Type: Spontaneous
  Country: KR (occurrence: KR)
  Receive Date: 20160310
  Receipt Date: 20160310
  Transmission Date: 20160526
  Serious: Yes (Other)
  Sender: FDA-Public Use
  Company Number: KR-CIPLA LTD.-2016KR02197

PATIENT

DRUGS (2)
  1. CARBOPLATIN. [Suspect]
     Active Substance: CARBOPLATIN
     Indication: SQUAMOUS CELL CARCINOMA OF LUNG
     Dosage: AUC 5, ON DAY 1, EVERY 21 DAYS
     Route: 065
  2. GEMCITABINE [Suspect]
     Active Substance: GEMCITABINE\GEMCITABINE HYDROCHLORIDE
     Indication: SQUAMOUS CELL CARCINOMA OF LUNG
     Dosage: 1000 MG/M2, ON DAY 1 AND 8, EVERY 21 DAYS
     Route: 065

REACTIONS (5)
  - Dyspnoea [Unknown]
  - Electrolyte imbalance [Unknown]
  - Oedema [Unknown]
  - Hypoalbuminaemia [Unknown]
  - Infection [Unknown]
